FAERS Safety Report 12140949 (Version 6)
Quarter: 2017Q1

REPORT INFORMATION
  Report Type: Spontaneous
  Country: JP (occurrence: JP)
  Receive Date: 20160303
  Receipt Date: 20170220
  Transmission Date: 20170428
  Serious: Yes (Death, Life-Threatening, Other)
  Sender: FDA-Public Use
  Company Number: JP-ACTELION-A-CH2016-132383

PATIENT
  Age: 60 Year
  Sex: Female

DRUGS (24)
  1. OPSUMIT [Suspect]
     Active Substance: MACITENTAN
     Dosage: 5 MG, QD
     Route: 048
     Dates: start: 20150616
  2. FUROSEMIDE. [Concomitant]
     Active Substance: FUROSEMIDE
  3. WARFARIN [Concomitant]
     Active Substance: WARFARIN
  4. SAMSCA [Concomitant]
     Active Substance: TOLVAPTAN
  5. SENNOSIDE [Concomitant]
     Active Substance: SENNOSIDES
  6. OPSUMIT [Suspect]
     Active Substance: MACITENTAN
     Indication: PORTOPULMONARY HYPERTENSION
     Dosage: 10 MG, QD
     Route: 048
     Dates: start: 20150903
  7. TREPROST [Concomitant]
     Active Substance: TREPROSTINIL
  8. NEXIUM [Concomitant]
     Active Substance: ESOMEPRAZOLE MAGNESIUM
  9. MAGLAX [Concomitant]
     Active Substance: MAGNESIUM OXIDE
  10. DAIPHEN [Concomitant]
     Active Substance: SULFAMETHOXAZOLE\TRIMETHOPRIM
  11. BARACLUDE [Concomitant]
     Active Substance: ENTECAVIR
  12. POLAPREZINC [Concomitant]
     Active Substance: POLAPREZINC
  13. LUBIPROSTONE [Concomitant]
     Active Substance: LUBIPROSTONE
  14. LOXOPROFEN SODIUM [Concomitant]
     Active Substance: LOXOPROFEN SODIUM
  15. REVATIO [Concomitant]
     Active Substance: SILDENAFIL CITRATE
  16. SLOW-K [Concomitant]
     Active Substance: POTASSIUM CHLORIDE
  17. ALLOPURINOL. [Concomitant]
     Active Substance: ALLOPURINOL
  18. REBAMIPIDE [Concomitant]
     Active Substance: REBAMIPIDE
  19. ALDACTONE A [Concomitant]
     Active Substance: SPIRONOLACTONE
  20. OXYGEN. [Concomitant]
     Active Substance: OXYGEN
  21. ACETAMINOPHEN W/CODEINE PHOSPHATE [Concomitant]
     Active Substance: ACETAMINOPHEN\CODEINE PHOSPHATE
  22. LUPRAC [Concomitant]
     Active Substance: TORSEMIDE
  23. LACTOMIN [Concomitant]
     Active Substance: LACTOBACILLUS ACIDOPHILUS
  24. BERASUS [Concomitant]
     Active Substance: BERAPROST SODIUM
     Indication: PRODUCT USED FOR UNKNOWN INDICATION

REACTIONS (12)
  - Blood alkaline phosphatase increased [Not Recovered/Not Resolved]
  - Gamma-glutamyltransferase increased [Not Recovered/Not Resolved]
  - Haematocrit decreased [Fatal]
  - Concomitant disease aggravated [Fatal]
  - Red blood cell count decreased [Fatal]
  - White blood cell count decreased [Fatal]
  - Concomitant disease progression [Not Recovered/Not Resolved]
  - Haemoglobin decreased [Fatal]
  - Hepatic cirrhosis [Not Recovered/Not Resolved]
  - Platelet count decreased [Fatal]
  - Lymphoma [Fatal]
  - Platelet transfusion [Unknown]

NARRATIVE: CASE EVENT DATE: 2015
